FAERS Safety Report 23570738 (Version 1)
Quarter: 2024Q1

REPORT INFORMATION
  Report Type: Report from Study
  Country: CA (occurrence: CA)
  Receive Date: 20240227
  Receipt Date: 20240227
  Transmission Date: 20240410
  Serious: Yes (Other)
  Sender: FDA-Public Use
  Company Number: CA-JNJFOC-20240263177

PATIENT
  Age: 16 Year
  Sex: Male
  Weight: 81.72 kg

DRUGS (1)
  1. REMICADE [Suspect]
     Active Substance: INFLIXIMAB
     Indication: Crohn^s disease
     Dosage: LAST INFUSION ON 24-JAN-2024.?EXPIRY DATE: JUN/2026
     Route: 041

REACTIONS (1)
  - Drain placement [Recovered/Resolved]

NARRATIVE: CASE EVENT DATE: 20240110
